FAERS Safety Report 4331963-0 (Version None)
Quarter: 2004Q2

REPORT INFORMATION
  Report Type: 
  Country: None (occurrence: None)
  Receive Date: 20040405
  Receipt Date: 20030721
  Transmission Date: 20050107
  Serious: No
  Sender: FDA-Public Use
  Company Number: US-GLAXOSMITHKLINE-A0418386A

PATIENT
  Sex: Female

DRUGS (3)
  1. SEREVENT [Suspect]
     Indication: ILL-DEFINED DISORDER
     Route: 055
  2. FLOVENT [Suspect]
     Indication: ILL-DEFINED DISORDER
     Route: 055
  3. UNKNOWN MEDICATION [Concomitant]

REACTIONS (2)
  - LARYNGEAL DISORDER [None]
  - OESOPHAGEAL DISORDER [None]
